FAERS Safety Report 4995469-8 (Version None)
Quarter: 2006Q2

REPORT INFORMATION
  Report Type: 
  Country: None (occurrence: None)
  Receive Date: 20060504
  Receipt Date: 20060420
  Transmission Date: 20061013
  Serious: Yes (Other)
  Sender: FDA-Public Use
  Company Number: 2006BH008623

PATIENT
  Sex: 0

DRUGS (4)
  1. MITOXANTRONE [Suspect]
     Indication: LYMPHOMA
     Dosage: 10 MG/M 2; EVERY 4 WK
  2. DEXAMETHASONE [Suspect]
     Indication: LYMPHOMA
     Dosage: 20 MG
  3. RITUXIMAB [Suspect]
     Indication: LYMPHOMA
     Dosage: 375 MG/M 2; EVERY 4 WK
  4. FLUDARABINE PHOSPHATE [Suspect]
     Indication: LYMPHOMA
     Dosage: 25 MG/M2

REACTIONS (2)
  - HAEMATOTOXICITY [None]
  - THROMBOCYTOPENIA [None]
